FAERS Safety Report 9173720 (Version 2)
Quarter: 2014Q1

REPORT INFORMATION
  Report Type: Spontaneous
  Country: JP (occurrence: JP)
  Receive Date: 20130320
  Receipt Date: 20140311
  Transmission Date: 20141002
  Serious: Yes (Death, Other)
  Sender: FDA-Public Use
  Company Number: JP-ASTELLAS-2013JP004033

PATIENT
  Age: 60 Year
  Sex: Female

DRUGS (9)
  1. PROGRAF [Suspect]
     Indication: PROPHYLAXIS AGAINST GRAFT VERSUS HOST DISEASE
     Dosage: UNK
     Route: 065
     Dates: start: 200909
  2. PROGRAF [Suspect]
     Indication: GRAFT VERSUS HOST DISEASE IN SKIN
     Dosage: UNK
     Route: 065
     Dates: start: 201007, end: 2012
  3. METHOTREXATE [Concomitant]
     Indication: PROPHYLAXIS AGAINST GRAFT VERSUS HOST DISEASE
     Dosage: UNK
     Route: 065
     Dates: start: 200909
  4. FLUDARABINE [Concomitant]
     Indication: PREMEDICATION
     Dosage: UNK
     Route: 065
     Dates: start: 200909
  5. BUSULFAN [Concomitant]
     Indication: PREMEDICATION
     Dosage: UNK
     Route: 065
     Dates: start: 200909
  6. PREDNISOLONE [Concomitant]
     Indication: GRAFT VERSUS HOST DISEASE IN SKIN
     Dosage: UNK
     Route: 065
     Dates: start: 201001
  7. PREDNISOLONE [Concomitant]
     Dosage: UNK
     Route: 065
     Dates: start: 201007, end: 2012
  8. PREDNISOLONE [Concomitant]
     Dosage: UNK
     Route: 065
     Dates: start: 2012
  9. CELLCEPT                           /01275102/ [Concomitant]
     Indication: GRAFT VERSUS HOST DISEASE IN SKIN
     Dosage: UNK
     Route: 048
     Dates: start: 201007, end: 2012

REACTIONS (5)
  - Drug ineffective [Unknown]
  - Graft versus host disease in skin [Unknown]
  - Malignant ascites [Fatal]
  - Leiomyoma [Recovering/Resolving]
  - Adenocarcinoma [Unknown]
